FAERS Safety Report 8572458-8 (Version None)
Quarter: 2012Q3

REPORT INFORMATION
  Report Type: 
  Country: None (occurrence: None)
  Receive Date: 20120806
  Receipt Date: 20120801
  Transmission Date: 20120928
  Serious: Yes (Other)
  Sender: FDA-Public Use
  Company Number: US-ROCHE-1091464

PATIENT
  Sex: Male
  Weight: 72.64 kg

DRUGS (9)
  1. OXYCODONE HCL [Concomitant]
     Route: 048
  2. M.V.I. [Concomitant]
  3. NEURONTIN [Concomitant]
     Route: 048
  4. VENLAFAXINE [Concomitant]
     Route: 048
  5. COUMADIN [Concomitant]
     Indication: DEEP VEIN THROMBOSIS
     Route: 048
  6. LOPRESSOR [Concomitant]
     Route: 048
  7. FISH OIL [Concomitant]
  8. ERIVEDGE [Suspect]
     Indication: RENAL CELL CARCINOMA
     Route: 048
     Dates: start: 20120310
  9. PLAVIX [Concomitant]
     Route: 048

REACTIONS (1)
  - THROMBOSIS [None]
